FAERS Safety Report 10247234 (Version 1)
Quarter: 2014Q2

REPORT INFORMATION
  Report Type: Spontaneous
  Country: US (occurrence: US)
  Receive Date: 20140619
  Receipt Date: 20140619
  Transmission Date: 20141212
  Serious: Yes (Hospitalization)
  Sender: FDA-Public Use
  Company Number: US-GLAXOSMITHKLINE-A1077118A

PATIENT
  Age: 71 Year
  Sex: Female

DRUGS (4)
  1. BECONASE AQ [Suspect]
     Indication: MULTIPLE ALLERGIES
     Dosage: 4SPR TWICE PER DAY
     Route: 045
  2. CLARINEX [Concomitant]
  3. TRAMADOL [Concomitant]
  4. TYLENOL [Concomitant]

REACTIONS (6)
  - Limb operation [Recovering/Resolving]
  - Hip arthroplasty [Recovering/Resolving]
  - Nasopharyngitis [Recovering/Resolving]
  - Pain in extremity [Recovering/Resolving]
  - Arthritis [Recovering/Resolving]
  - Exostosis [Recovering/Resolving]
